FAERS Safety Report 6278293-8 (Version None)
Quarter: 2009Q3

REPORT INFORMATION
  Report Type: 
  Country: None (occurrence: None)
  Receive Date: 20090722
  Receipt Date: 20090716
  Transmission Date: 20100115
  Serious: Yes (Hospitalization)
  Sender: FDA-Public Use
  Company Number: US-GILEAD-2009-0023058

PATIENT
  Sex: Female
  Weight: 76.227 kg

DRUGS (26)
  1. LETAIRIS [Suspect]
     Indication: PULMONARY ARTERIAL HYPERTENSION
     Route: 048
  2. METOPROLOL SUCCINATE [Concomitant]
  3. PLAVIX [Concomitant]
  4. LISINOPRIL [Concomitant]
  5. LIPITOR [Concomitant]
  6. FUROSEMIDE [Concomitant]
  7. ASPIRIN [Concomitant]
  8. GABAPENTIN [Concomitant]
  9. OXYGEN [Concomitant]
  10. REVATIO [Concomitant]
  11. ZYRTEC [Concomitant]
  12. NASONEX [Concomitant]
  13. AMITRIPTYLINE [Concomitant]
  14. CLONIDINE [Concomitant]
  15. KETAMINE HCL [Concomitant]
  16. KETOPROFEN [Concomitant]
  17. LECITHIN [Concomitant]
  18. LIDOCAINE [Concomitant]
  19. POLOXAMER GEL [Concomitant]
  20. CIPROFLOXACIN [Concomitant]
  21. FOLIC ACID [Concomitant]
  22. BONIVA [Concomitant]
  23. CALCIUM +D [Concomitant]
  24. VITAMIN D [Concomitant]
  25. NEXIUM [Concomitant]
  26. LEVOBUNOLOL HCL [Concomitant]

REACTIONS (4)
  - ATRIAL FIBRILLATION [None]
  - CHILLS [None]
  - HEART RATE IRREGULAR [None]
  - HYPOTENSION [None]
